FAERS Safety Report 23127345 (Version 4)
Quarter: 2025Q2

REPORT INFORMATION
  Report Type: Report from Study
  Country: US (occurrence: US)
  Receive Date: 20231031
  Receipt Date: 20250411
  Transmission Date: 20250717
  Serious: Yes (Hospitalization, Other)
  Sender: TAKEDA
  Company Number: US-TAKEDA-2023TUS025791

PATIENT
  Sex: Female
  Weight: 78.005 kg

DRUGS (23)
  1. HUMAN IMMUNOGLOBULIN G [Suspect]
     Active Substance: HUMAN IMMUNOGLOBULIN G
     Indication: Immunodeficiency common variable
     Dosage: 20 GRAM, 1/WEEK
     Dates: start: 20221028
  2. HUMAN IMMUNOGLOBULIN G [Suspect]
     Active Substance: HUMAN IMMUNOGLOBULIN G
     Indication: IgG deficiency
  3. DIPHENHYDRAMINE [Concomitant]
     Active Substance: DIPHENHYDRAMINE
  4. ALBUTEROL SULFATE [Concomitant]
     Active Substance: ALBUTEROL SULFATE
  5. DALIRESP [Concomitant]
     Active Substance: ROFLUMILAST
  6. METOPROLOL SUCCINATE [Concomitant]
     Active Substance: METOPROLOL SUCCINATE
  7. EPINEPHRINE [Concomitant]
     Active Substance: EPINEPHRINE
  8. GABAPENTIN [Concomitant]
     Active Substance: GABAPENTIN
  9. ACETAMINOPHEN [Concomitant]
     Active Substance: ACETAMINOPHEN
  10. ATORVASTATIN CALCIUM [Concomitant]
     Active Substance: ATORVASTATIN CALCIUM
  11. MULTAQ [Concomitant]
     Active Substance: DRONEDARONE
  12. FLONASE ALLERGY RELIEF [Concomitant]
     Active Substance: FLUTICASONE PROPIONATE
  13. IRON [Concomitant]
     Active Substance: IRON
  14. XARELTO [Concomitant]
     Active Substance: RIVAROXABAN
  15. MONTELUKAST SODIUM [Concomitant]
     Active Substance: MONTELUKAST SODIUM
  16. LIDOCAINE [Concomitant]
     Active Substance: LIDOCAINE
  17. COMBIVENT RESPIMAT [Concomitant]
     Active Substance: ALBUTEROL SULFATE\IPRATROPIUM BROMIDE
  18. VITAMIN B12 [Concomitant]
     Active Substance: CYANOCOBALAMIN
  19. DIPHENHYDRAMINE HYDROCHLORIDE [Concomitant]
     Active Substance: DIPHENHYDRAMINE HYDROCHLORIDE
  20. ATORVASTATIN [Concomitant]
     Active Substance: ATORVASTATIN
  21. ALBUTEROL [Concomitant]
     Active Substance: ALBUTEROL
  22. MONTELUKAST [Concomitant]
     Active Substance: MONTELUKAST
  23. FLONASE [Concomitant]
     Active Substance: FLUTICASONE PROPIONATE

REACTIONS (10)
  - Pneumonia [Unknown]
  - Product use issue [Unknown]
  - Insurance issue [Unknown]
  - Seasonal allergy [Unknown]
  - Inappropriate schedule of product administration [Unknown]
  - Lung disorder [Unknown]
  - Product dose omission issue [Unknown]
  - Peripheral swelling [Unknown]
  - Dyspnoea [Unknown]
  - Infusion site pruritus [Unknown]
